FAERS Safety Report 14873234 (Version 2)
Quarter: 2018Q2

REPORT INFORMATION
  Report Type: Spontaneous
  Country: US (occurrence: US)
  Receive Date: 20180510
  Receipt Date: 20180604
  Transmission Date: 20180711
  Serious: Yes (Hospitalization)
  Sender: FDA-Public Use
  Company Number: US-PFIZER INC-2018186542

PATIENT
  Age: 76 Year
  Sex: Female
  Weight: 53.52 kg

DRUGS (3)
  1. ATORVASTATIN [Concomitant]
     Active Substance: ATORVASTATIN
     Indication: BLOOD CHOLESTEROL ABNORMAL
     Dosage: 10 MG, 1X/DAY (AT BEDTIME)
  2. VITAMIN D [Concomitant]
     Active Substance: CHOLECALCIFEROL
     Dosage: UNK
  3. LYRICA [Suspect]
     Active Substance: PREGABALIN
     Indication: NEUROPATHY PERIPHERAL
     Dosage: 50 MG, 1X/DAY (AT BEDTIME)
     Dates: start: 2014, end: 201804

REACTIONS (12)
  - Fall [Recovered/Resolved]
  - Muscle spasms [Unknown]
  - Dizziness [Not Recovered/Not Resolved]
  - Weight decreased [Unknown]
  - Insomnia [Unknown]
  - Withdrawal syndrome [Not Recovered/Not Resolved]
  - Intentional product misuse [Unknown]
  - Crying [Unknown]
  - Dyspnoea [Not Recovered/Not Resolved]
  - Tremor [Not Recovered/Not Resolved]
  - Pain [Unknown]
  - Eating disorder [Unknown]

NARRATIVE: CASE EVENT DATE: 2014
